FAERS Safety Report 16919477 (Version 1)
Quarter: 2019Q4

REPORT INFORMATION
  Report Type: Spontaneous
  Country: US (occurrence: US)
  Receive Date: 20190822
  Receipt Date: 20190822
  Transmission Date: 20200122
  Serious: No
  Sender: FDA-Public Use
  Company Number: None

PATIENT
  Age: 64 Year
  Sex: Female

DRUGS (1)
  1. SIMPONI [Suspect]
     Active Substance: GOLIMUMAB
     Indication: RHEUMATOID ARTHRITIS
     Route: 058
     Dates: start: 201905

REACTIONS (6)
  - Oropharyngeal pain [None]
  - Fatigue [None]
  - Nausea [None]
  - Paraesthesia [None]
  - Hypoaesthesia [None]
  - Cold sweat [None]

NARRATIVE: CASE EVENT DATE: 20190812
